FAERS Safety Report 4699560-5 (Version None)
Quarter: 2005Q2

REPORT INFORMATION
  Report Type: 
  Country: None (occurrence: None)
  Receive Date: 20050624
  Receipt Date: 20050613
  Transmission Date: 20051028
  Serious: Yes (Other)
  Sender: FDA-Public Use
  Company Number: 2005UW09065

PATIENT
  Age: 53 Year
  Sex: Female
  Weight: 68 kg

DRUGS (3)
  1. ARIMIDEX [Suspect]
     Indication: BREAST CANCER
     Route: 048
  2. ZYRTEC [Concomitant]
  3. ALLERGY SHOT [Concomitant]

REACTIONS (3)
  - ANAPHYLACTIC REACTION [None]
  - BLOOD PRESSURE SYSTOLIC DECREASED [None]
  - SYNCOPE [None]
